FAERS Safety Report 10990940 (Version 1)
Quarter: 2015Q2

REPORT INFORMATION
  Report Type: Spontaneous
  Country: US (occurrence: US)
  Receive Date: 20150406
  Receipt Date: 20150406
  Transmission Date: 20150821
  Serious: No
  Sender: FDA-Public Use
  Company Number: US-BAXTER-2015BAX016920

PATIENT
  Sex: Male

DRUGS (2)
  1. 5% DEXTROSE INJECTION, USP IN MINI-BAG PLUS CONTAINER [Suspect]
     Active Substance: DEXTROSE
     Indication: PRODUCT USED FOR UNKNOWN INDICATION
     Route: 065
  2. INVANZ [Suspect]
     Active Substance: ERTAPENEM SODIUM
     Indication: PRODUCT USED FOR UNKNOWN INDICATION
     Route: 065

REACTIONS (1)
  - Foreign body in eye [Recovered/Resolved]

NARRATIVE: CASE EVENT DATE: 20150319
